FAERS Safety Report 21627311 (Version 1)
Quarter: 2022Q4

REPORT INFORMATION
  Report Type: Spontaneous
  Country: GB (occurrence: GB)
  Receive Date: 20221122
  Receipt Date: 20221122
  Transmission Date: 20230113
  Serious: Yes (Hospitalization, Other)
  Sender: FDA-Public Use
  Company Number: GB-MHRA-MED-202211181631141420-LTBFN

PATIENT
  Sex: Female

DRUGS (2)
  1. CLINDAMYCIN [Suspect]
     Active Substance: CLINDAMYCIN
     Indication: Adverse drug reaction
     Dosage: TAKE 1 CAPSULE BY MOUTH THREE TIMES DAILY FOR 7 DAYS
     Route: 048
     Dates: start: 20221111
  2. PREDNISONE [Concomitant]
     Active Substance: PREDNISONE
     Indication: Adverse drug reaction
     Dosage: UNK
     Route: 065
     Dates: start: 20221111, end: 20221116

REACTIONS (4)
  - Hypoaesthesia [Recovering/Resolving]
  - Hypoaesthesia [Recovering/Resolving]
  - Hypoaesthesia [Recovering/Resolving]
  - Hypoaesthesia [Recovering/Resolving]

NARRATIVE: CASE EVENT DATE: 20221116
